FAERS Safety Report 23117933 (Version 1)
Quarter: 2023Q4

REPORT INFORMATION
  Report Type: Spontaneous
  Country: CH (occurrence: None)
  Receive Date: 20231027
  Receipt Date: 20231027
  Transmission Date: 20240110
  Serious: Yes (Disabling)
  Sender: FDA-Public Use
  Company Number: 2023A245157

PATIENT
  Age: 53 Year
  Sex: Female

DRUGS (3)
  1. QUETIAPINE [Suspect]
     Active Substance: QUETIAPINE
     Indication: Bipolar disorder
     Dates: start: 2019
  2. PREGABALIN [Suspect]
     Active Substance: PREGABALIN
  3. CIMEFEMIN FORTE [Concomitant]

REACTIONS (2)
  - Muscular weakness [Unknown]
  - Gait disturbance [Unknown]
